APPROVED DRUG PRODUCT: PERPHENAZINE
Active Ingredient: PERPHENAZINE
Strength: 16MG **Federal Register determination that product was not discontinued or withdrawn for safety or effectiveness reasons**
Dosage Form/Route: TABLET;ORAL
Application: A089457 | Product #001
Applicant: ANI PHARMACEUTICALS INC
Approved: Sep 10, 1987 | RLD: No | RS: No | Type: DISCN